FAERS Safety Report 21950499 (Version 1)
Quarter: 2023Q1

REPORT INFORMATION
  Report Type: Spontaneous
  Country: CA (occurrence: CA)
  Receive Date: 20230203
  Receipt Date: 20230203
  Transmission Date: 20230418
  Serious: Yes (Other)
  Sender: FDA-Public Use
  Company Number: CA-OTSUKA-2023_002630

PATIENT

DRUGS (1)
  1. ABILIFY MAINTENA [Suspect]
     Active Substance: ARIPIPRAZOLE
     Indication: Affective disorder
     Dosage: 300 MG
     Route: 065
     Dates: start: 2015

REACTIONS (13)
  - Neuropathy peripheral [Unknown]
  - Peroneal nerve palsy [Unknown]
  - Loss of personal independence in daily activities [Unknown]
  - Obsessive-compulsive disorder [Unknown]
  - Muscular weakness [Unknown]
  - Pain [Unknown]
  - Headache [Unknown]
  - Injection site pain [Unknown]
  - Agitation [Unknown]
  - Hypersexuality [Unknown]
  - Insomnia [Unknown]
  - Product use in unapproved indication [Unknown]
  - Underdose [Unknown]
